FAERS Safety Report 6608226-3 (Version None)
Quarter: 2010Q1

REPORT INFORMATION
  Report Type: 
  Country: None (occurrence: None)
  Receive Date: 20100301
  Receipt Date: 20100219
  Transmission Date: 20100710
  Serious: Yes (Hospitalization)
  Sender: FDA-Public Use
  Company Number: JP-ROCHE-619823

PATIENT
  Sex: Male
  Weight: 55 kg

DRUGS (5)
  1. AVASTIN [Suspect]
     Indication: RECTAL CANCER METASTATIC
     Route: 041
     Dates: start: 20081205, end: 20090120
  2. IRINOTECAN HYDROCHLORIDE [Concomitant]
     Route: 041
  3. 5-FU [Concomitant]
     Dosage: ROUTE: INTRAVENOUS BOLUS
     Route: 042
  4. 5-FU [Concomitant]
     Dosage: ROUTE: INTRAVENOUS DRIP
     Route: 042
  5. CALCIUM LEVOFOLINATE [Concomitant]
     Route: 041

REACTIONS (1)
  - ARTERIOSCLEROSIS OBLITERANS [None]
